FAERS Safety Report 8083267-0 (Version None)
Quarter: 2012Q1

REPORT INFORMATION
  Report Type: 
  Country: None (occurrence: None)
  Receive Date: 20120127
  Receipt Date: 20110304
  Transmission Date: 20120608
  Serious: No
  Sender: FDA-Public Use
  Company Number: US-ABBOTT-11P-163-0709384-00

PATIENT
  Age: 36 Year
  Sex: Male

DRUGS (6)
  1. HUMIRA [Suspect]
     Dosage: LOADING DOSE
     Dates: start: 20110201
  2. METHADONE HCL [Concomitant]
     Indication: PAIN
  3. HUMIRA [Suspect]
     Indication: CROHN'S DISEASE
     Dosage: LOADING DOSE
     Dates: start: 20110118
  4. OXYFAST [Concomitant]
     Indication: BREAKTHROUGH PAIN
     Dosage: ELIXIR
  5. DILAUDID [Concomitant]
     Indication: BREAKTHROUGH PAIN
     Dosage: WITH PHENERGAN
     Route: 030
  6. PHENERGAN [Concomitant]
     Indication: BREAKTHROUGH PAIN
     Dosage: WITH DILAUDID

REACTIONS (1)
  - HERPES ZOSTER [None]
